FAERS Safety Report 16453312 (Version 4)
Quarter: 2019Q3

REPORT INFORMATION
  Report Type: Spontaneous
  Country: US (occurrence: US)
  Receive Date: 20190619
  Receipt Date: 20190930
  Transmission Date: 20191004
  Serious: Yes (Other)
  Sender: FDA-Public Use
  Company Number: US-SA-2019SA157254

PATIENT
  Age: 59 Year
  Sex: Male

DRUGS (2)
  1. APIDRA [Suspect]
     Active Substance: INSULIN GLULISINE
     Indication: TYPE 2 DIABETES MELLITUS
     Dosage: 3 TO 6 UNITS DAILY DEPENDING ON CARB INTAKE
     Route: 065
     Dates: start: 201604
  2. APIDRA [Suspect]
     Active Substance: INSULIN GLULISINE
     Dosage: SLIDING 6-13 UNITS
     Route: 065

REACTIONS (4)
  - Drug ineffective [Unknown]
  - Weight increased [Unknown]
  - Blood glucose increased [Recovered/Resolved]
  - Diabetes mellitus inadequate control [Unknown]
